FAERS Safety Report 4466156-X (Version None)
Quarter: 2004Q3

REPORT INFORMATION
  Report Type: 
  Country: None (occurrence: None)
  Receive Date: 20040930
  Receipt Date: 20040920
  Transmission Date: 20050211
  Serious: Yes (Disabling)
  Sender: FDA-Public Use
  Company Number: 2004232326DE

PATIENT
  Age: 44 Year
  Sex: Female

DRUGS (2)
  1. CABASERIL(CABERGOLINE) TABLET, 1-4MG [Suspect]
     Indication: RESTLESS LEGS SYNDROME
     Dosage: 3 MG/DAY, ORAL
     Route: 048
     Dates: start: 20040820
  2. CABASERIL REGIMEN #2 [Suspect]
     Dosage: 1 MG/DAY

REACTIONS (5)
  - ASTHENIA [None]
  - CHEST DISCOMFORT [None]
  - NAUSEA [None]
  - VOMITING [None]
  - WEIGHT DECREASED [None]
